FAERS Safety Report 24777589 (Version 1)
Quarter: 2024Q4

REPORT INFORMATION
  Report Type: Report from Study
  Country: US (occurrence: US)
  Receive Date: 20241226
  Receipt Date: 20241226
  Transmission Date: 20250115
  Serious: Yes (Other)
  Sender: MYLAN
  Company Number: US-MYLANLABS-2024M1113432

PATIENT
  Age: 59 Year
  Sex: Female

DRUGS (2)
  1. PREDNISONE [Suspect]
     Active Substance: PREDNISONE
     Indication: Myelofibrosis
     Dosage: UNK
     Route: 065
  2. LENALIDOMIDE [Suspect]
     Active Substance: LENALIDOMIDE
     Indication: Myelofibrosis
     Dosage: 10 MILLIGRAM, QD; FOR 21 DAYS OF 28 DAYS CYCLE
     Route: 065

REACTIONS (3)
  - Neutropenia [Unknown]
  - Hepatotoxicity [Unknown]
  - Drug ineffective [Unknown]
